FAERS Safety Report 18574611 (Version 2)
Quarter: 2020Q4

REPORT INFORMATION
  Report Type: Spontaneous
  Country: PL (occurrence: PL)
  Receive Date: 20201203
  Receipt Date: 20201217
  Transmission Date: 20210114
  Serious: Yes (Hospitalization)
  Sender: FDA-Public Use
  Company Number: PL-TEVA-2020-PL-1855038

PATIENT
  Age: 3 Year
  Sex: Male

DRUGS (2)
  1. CECLOR [Suspect]
     Active Substance: CEFACLOR
     Dosage: 250 MG/5 ML 2 X 3 ML FOR A MONTH
     Route: 065
     Dates: start: 202011, end: 202011
  2. CECLOR [Suspect]
     Active Substance: CEFACLOR
     Dosage: 250 MG / 5 ML - 2-3 X 5 ML FOR 5-7 DAYS.
     Route: 065
     Dates: start: 202011, end: 202011

REACTIONS (12)
  - Pruritus genital [Recovered/Resolved]
  - Joint swelling [Recovered/Resolved]
  - Gait disturbance [Recovered/Resolved]
  - Pain in extremity [Recovered/Resolved]
  - Arthralgia [Recovered/Resolved]
  - Rash [Recovering/Resolving]
  - Ocular hyperaemia [Recovered/Resolved]
  - Joint warmth [Recovered/Resolved]
  - Drug hypersensitivity [Recovered/Resolved]
  - Musculoskeletal discomfort [Recovered/Resolved]
  - Drug ineffective [Unknown]
  - Pyrexia [Recovered/Resolved]

NARRATIVE: CASE EVENT DATE: 202011
